FAERS Safety Report 9586269 (Version 1)
Quarter: 2013Q3

REPORT INFORMATION
  Report Type: Spontaneous
  Country: CA (occurrence: None)
  Receive Date: 20130806
  Receipt Date: 20130806
  Transmission Date: 20140515
  Serious: Yes (Hospitalization, Other)
  Sender: FDA-Public Use
  Company Number: 2013AL000471

PATIENT
  Age: 93 Year
  Sex: Female

DRUGS (10)
  1. MACROBID (NITROFURANTOIN) [Suspect]
     Indication: PRODUCT USED FOR UNKNOWN INDICATION
     Route: 048
  2. RABEPRAZOLE [Concomitant]
  3. HYDROMORPHONE [Concomitant]
  4. DIGOXIN [Concomitant]
  5. FUROSEMIDE [Concomitant]
  6. LEVOTHYROXINE [Concomitant]
  7. CALCIUM CITRATE [Concomitant]
  8. COLECALCIFEROL [Concomitant]
  9. ZOPICLONE [Concomitant]
  10. ACETYLSALICYLIC ACID [Concomitant]

REACTIONS (2)
  - Blood pressure decreased [None]
  - Pneumonitis [None]
